FAERS Safety Report 5467783-3 (Version None)
Quarter: 2007Q3

REPORT INFORMATION
  Report Type: 
  Country: None (occurrence: None)
  Receive Date: 20070926
  Receipt Date: 20070921
  Transmission Date: 20080115
  Serious: Yes (Hospitalization, Other)
  Sender: FDA-Public Use
  Company Number: GR-RB-008098-07

PATIENT
  Age: 64 Year
  Sex: Male

DRUGS (4)
  1. SUBUTEX [Suspect]
     Dosage: 8MG QD
     Route: 060
     Dates: start: 20070711, end: 20070714
  2. TENORMIN [Concomitant]
     Indication: HYPERTENSION
     Dosage: DOSAGE AND FREQUENCY UNKNOWN
     Route: 065
  3. INSULIN [Concomitant]
     Indication: DRUG USE FOR UNKNOWN INDICATION
     Dosage: DOSAGE AND FREQUENCY UNKNOWN
     Route: 065
     Dates: start: 20070717
  4. INDAPAMIDE [Concomitant]
     Indication: HYPERTENSION
     Dosage: DOSAGE AND FREQUENCY UNKNOWN
     Route: 065

REACTIONS (3)
  - CONFUSIONAL STATE [None]
  - DIABETIC COMA [None]
  - HYPERPYREXIA [None]
